FAERS Safety Report 15935730 (Version 1)
Quarter: 2019Q1

REPORT INFORMATION
  Report Type: Other
  Country: IT (occurrence: IT)
  Receive Date: 20190208
  Receipt Date: 20190208
  Transmission Date: 20190417
  Serious: Yes (Hospitalization, Other)
  Sender: FDA-Public Use
  Company Number: IT-MACLEODS PHARMACEUTICALS US LTD-MAC2019019976

PATIENT

DRUGS (3)
  1. ARIPIPRAZOLE TABLET [Suspect]
     Active Substance: ARIPIPRAZOLE
     Indication: DRUG ABUSE
     Dosage: 1 DOSAGE FORM, QD
     Route: 048
  2. SEREUPIN [Suspect]
     Active Substance: PAROXETINE HYDROCHLORIDE
     Indication: DRUG ABUSE
     Dosage: 1 DOSAGE FORM (TOTAL)
     Route: 048
  3. RISPERIDONE. [Suspect]
     Active Substance: RISPERIDONE
     Indication: DRUG ABUSE
     Dosage: 1 DOSAGE FORM (TOTAL)
     Route: 048

REACTIONS (2)
  - Substance abuse [Unknown]
  - Sopor [Unknown]

NARRATIVE: CASE EVENT DATE: 20190115
